FAERS Safety Report 16085629 (Version 1)
Quarter: 2019Q1

REPORT INFORMATION
  Report Type: Spontaneous
  Country: US (occurrence: US)
  Receive Date: 20190318
  Receipt Date: 20190318
  Transmission Date: 20190418
  Serious: Yes (Hospitalization)
  Sender: FDA-Public Use
  Company Number: US-ABBVIE-19S-163-2701906-00

PATIENT
  Age: 33 Year
  Sex: Male

DRUGS (5)
  1. NUEDEXTA [Suspect]
     Active Substance: DEXTROMETHORPHAN HYDROBROMIDE\QUINIDINE SULFATE
     Indication: IRRITABILITY
     Dosage: 20/10 MG, BID
     Route: 048
     Dates: start: 20160623, end: 201701
  2. NUEDEXTA [Suspect]
     Active Substance: DEXTROMETHORPHAN HYDROBROMIDE\QUINIDINE SULFATE
     Indication: CRANIOCEREBRAL INJURY
     Route: 048
     Dates: start: 2017, end: 20170505
  3. NUEDEXTA [Suspect]
     Active Substance: DEXTROMETHORPHAN HYDROBROMIDE\QUINIDINE SULFATE
     Indication: AFFECT LABILITY
     Dosage: 20/10 MG, DAILY
     Route: 048
     Dates: start: 20160615, end: 20160622
  4. DEPAKOTE [Suspect]
     Active Substance: DIVALPROEX SODIUM
     Indication: SEIZURE PROPHYLAXIS
     Dosage: MORNING AND EVENING
     Route: 065
     Dates: start: 2006
  5. NUEDEXTA [Suspect]
     Active Substance: DEXTROMETHORPHAN HYDROBROMIDE\QUINIDINE SULFATE
     Dosage: BID
     Route: 048

REACTIONS (7)
  - Seizure [Recovered/Resolved]
  - Anger [Recovered/Resolved]
  - Frustration tolerance decreased [Recovered/Resolved]
  - Head injury [Recovered/Resolved]
  - Drug level decreased [Unknown]
  - Memory impairment [Unknown]
  - Apnoea [Recovered/Resolved]

NARRATIVE: CASE EVENT DATE: 2007
